FAERS Safety Report 10993781 (Version 1)
Quarter: 2015Q2

REPORT INFORMATION
  Report Type: Spontaneous
  Country: GB (occurrence: None)
  Receive Date: 20150403
  Receipt Date: 20150403
  Transmission Date: 20150821
  Serious: Yes (Life-Threatening, Hospitalization, Other)
  Sender: FDA-Public Use
  Company Number: GB-DEXPHARM-20150193

PATIENT
  Age: 72 Year
  Sex: Male

DRUGS (15)
  1. LENALIDOMIDE [Suspect]
     Active Substance: LENALIDOMIDE
     Indication: PLASMA CELL MYELOMA
     Route: 048
     Dates: start: 20150206, end: 20150227
  2. LOPERAMIDE [Concomitant]
     Active Substance: LOPERAMIDE
  3. SIMVASTATIN. [Concomitant]
     Active Substance: SIMVASTATIN
  4. BEZAFIBRATE [Concomitant]
     Active Substance: BEZAFIBRATE
  5. BISOPROLOL [Concomitant]
     Active Substance: BISOPROLOL
  6. PERINDOPRIL [Concomitant]
     Active Substance: PERINDOPRIL
  7. ALLOPURINOL. [Concomitant]
     Active Substance: ALLOPURINOL
  8. BRIMONIDINE [Concomitant]
     Active Substance: BRIMONIDINE\BRIMONIDINE TARTRATE
  9. COSOPT [Concomitant]
     Active Substance: DORZOLAMIDE HYDROCHLORIDE\TIMOLOL MALEATE
  10. OMEPRAZOLE. [Suspect]
     Active Substance: OMEPRAZOLE
     Route: 048
  11. LATANOPROST. [Concomitant]
     Active Substance: LATANOPROST
  12. ASPIRIN. [Concomitant]
     Active Substance: ASPIRIN
  13. CALCICHEW D3 [Concomitant]
     Active Substance: CALCIUM\CHOLECALCIFEROL
  14. FOLIC ACID. [Concomitant]
     Active Substance: FOLIC ACID
  15. QUININE SULPHATE [Concomitant]
     Active Substance: QUININE SULFATE

REACTIONS (4)
  - Seizure [None]
  - Acute kidney injury [None]
  - Blood magnesium decreased [None]
  - Blood calcium decreased [None]

NARRATIVE: CASE EVENT DATE: 20150311
